FAERS Safety Report 6065848-9 (Version None)
Quarter: 2009Q1

REPORT INFORMATION
  Report Type: 
  Country: None (occurrence: None)
  Receive Date: 20090205
  Receipt Date: 20090128
  Transmission Date: 20090719
  Serious: Yes (Hospitalization, Other)
  Sender: FDA-Public Use
  Company Number: BE-JNJFOC-20081204408

PATIENT
  Sex: Male

DRUGS (3)
  1. TOPAMAX [Suspect]
     Indication: EPILEPSY
     Route: 048
  2. AVONEX [Suspect]
     Indication: MULTIPLE SCLEROSIS
  3. DEPAKENE [Concomitant]
     Indication: EPILEPSY

REACTIONS (2)
  - MANIA [None]
  - MULTIPLE SCLEROSIS [None]
